FAERS Safety Report 18601052 (Version 1)
Quarter: 2020Q4

REPORT INFORMATION
  Report Type: Spontaneous
  Country: US (occurrence: US)
  Receive Date: 20201210
  Receipt Date: 20201210
  Transmission Date: 20210114
  Serious: Yes (Other)
  Sender: FDA-Public Use
  Company Number: None

PATIENT
  Age: 45 Year
  Sex: Male

DRUGS (2)
  1. OTEZLA [Concomitant]
     Active Substance: APREMILAST
     Dates: start: 20201116
  2. OTEZLA [Suspect]
     Active Substance: APREMILAST

REACTIONS (1)
  - Nausea [None]

NARRATIVE: CASE EVENT DATE: 20201123
